FAERS Safety Report 11796801 (Version 4)
Quarter: 2016Q4

REPORT INFORMATION
  Report Type: Spontaneous
  Country: US (occurrence: US)
  Receive Date: 20151203
  Receipt Date: 20161107
  Transmission Date: 20170206
  Serious: No
  Sender: FDA-Public Use
  Company Number: US-ASTRAZENECA-2015SF18744

PATIENT
  Age: 854 Month
  Sex: Female

DRUGS (2)
  1. IRESSA [Suspect]
     Active Substance: GEFITINIB
     Indication: BRONCHIAL CARCINOMA
     Route: 048
     Dates: start: 20151023
  2. IRESSA [Suspect]
     Active Substance: GEFITINIB
     Indication: LUNG NEOPLASM MALIGNANT
     Route: 048
     Dates: start: 20151023

REACTIONS (11)
  - Psoriasis [Unknown]
  - Skin disorder [Not Recovered/Not Resolved]
  - Product use issue [Unknown]
  - Pulmonary congestion [Unknown]
  - Diarrhoea [Unknown]
  - Dry skin [Unknown]
  - Rash pruritic [Unknown]
  - Cough [Unknown]
  - Skin disorder [Unknown]
  - Off label use [Unknown]
  - Rosacea [Unknown]

NARRATIVE: CASE EVENT DATE: 201511
